FAERS Safety Report 4718226-6 (Version None)
Quarter: 2005Q3

REPORT INFORMATION
  Report Type: 
  Country: None (occurrence: None)
  Receive Date: 20050719
  Receipt Date: 20050609
  Transmission Date: 20060218
  Serious: Yes (Other)
  Sender: FDA-Public Use
  Company Number: A-US2005-09246

PATIENT
  Age: 73 Year
  Sex: Female

DRUGS (19)
  1. TRACLEER [Suspect]
     Indication: PULMONARY HYPERTENSION
     Dosage: 62.5 MG, BID; ORAL (SEE IMAGE)
     Route: 048
     Dates: start: 20050301, end: 20050331
  2. TRACLEER [Suspect]
     Indication: PULMONARY HYPERTENSION
     Dosage: 62.5 MG, BID; ORAL (SEE IMAGE)
     Route: 048
     Dates: start: 20050401, end: 20050527
  3. DIGOXIN [Concomitant]
  4. PLAVIX [Concomitant]
  5. FOLIC ACID [Concomitant]
  6. ZANTAC [Concomitant]
  7. TRICOR [Concomitant]
  8. TYLENOL (PARACETAMOL) [Concomitant]
  9. ^GLUCOSE SUPPLEMENTATION FOR ARTHRITIS^ (GLUCOSE) [Concomitant]
  10. CARISOPRODOL [Concomitant]
  11. COUMADIN [Concomitant]
  12. COD-LIVER OIL [Concomitant]
  13. CALCIUM GLUCONATE [Concomitant]
  14. LASIX [Concomitant]
  15. KCL TAB [Concomitant]
  16. FOSAMAX [Concomitant]
  17. RANITIDINE [Concomitant]
  18. COSAMINE [Concomitant]
  19. WARFARIN [Concomitant]

REACTIONS (5)
  - BLOOD CREATININE INCREASED [None]
  - DECREASED APPETITE [None]
  - GAMMA-GLUTAMYLTRANSFERASE INCREASED [None]
  - LIVER FUNCTION TEST ABNORMAL [None]
  - WEIGHT INCREASED [None]
